FAERS Safety Report 13411706 (Version 2)
Quarter: 2017Q4

REPORT INFORMATION
  Report Type: Spontaneous
  Country: US (occurrence: US)
  Receive Date: 20170406
  Receipt Date: 20171123
  Transmission Date: 20180320
  Serious: No
  Sender: FDA-Public Use
  Company Number: US-JNJFOC-20170303988

PATIENT
  Sex: Male

DRUGS (47)
  1. RISPERDAL [Suspect]
     Active Substance: RISPERIDONE
     Indication: BIPOLAR I DISORDER
     Route: 048
     Dates: start: 20120706
  2. RISPERIDONE. [Suspect]
     Active Substance: RISPERIDONE
     Indication: AUTISM SPECTRUM DISORDER
     Route: 048
     Dates: start: 20131216
  3. RISPERDAL CONSTA [Suspect]
     Active Substance: RISPERIDONE
     Indication: MANIA
     Route: 030
     Dates: start: 20131216, end: 20140218
  4. RISPERDAL [Suspect]
     Active Substance: RISPERIDONE
     Indication: AUTISM SPECTRUM DISORDER
     Route: 048
     Dates: start: 20131216, end: 20140218
  5. RISPERDAL [Suspect]
     Active Substance: RISPERIDONE
     Indication: MANIA
     Route: 048
     Dates: start: 20120618
  6. RISPERDAL [Suspect]
     Active Substance: RISPERIDONE
     Indication: MANIA
     Route: 048
     Dates: start: 20120706
  7. RISPERIDONE. [Suspect]
     Active Substance: RISPERIDONE
     Indication: MANIA
     Route: 048
     Dates: start: 20120618, end: 20120706
  8. RISPERIDONE. [Suspect]
     Active Substance: RISPERIDONE
     Indication: BIPOLAR I DISORDER
     Dosage: VARYING DOSES OF 1 MG AND 2 MG
     Route: 048
     Dates: start: 20140211, end: 20140218
  9. RISPERIDONE. [Suspect]
     Active Substance: RISPERIDONE
     Indication: PRODUCT USED FOR UNKNOWN INDICATION
     Route: 048
  10. RISPERDAL [Suspect]
     Active Substance: RISPERIDONE
     Indication: OBSESSIVE-COMPULSIVE DISORDER
     Route: 048
     Dates: start: 20020703, end: 20021213
  11. RISPERDAL [Suspect]
     Active Substance: RISPERIDONE
     Indication: IMPULSE-CONTROL DISORDER
     Route: 048
     Dates: start: 20120618
  12. RISPERDAL [Suspect]
     Active Substance: RISPERIDONE
     Indication: IMPULSE-CONTROL DISORDER
     Route: 048
     Dates: start: 20020703, end: 20021213
  13. RISPERIDONE. [Suspect]
     Active Substance: RISPERIDONE
     Indication: OBSESSIVE-COMPULSIVE DISORDER
     Dosage: VARYING DOSES OF 1 MG AND 2 MG
     Route: 048
     Dates: start: 20140211, end: 20140218
  14. RISPERIDONE. [Suspect]
     Active Substance: RISPERIDONE
     Indication: OBSESSIVE-COMPULSIVE DISORDER
     Route: 048
     Dates: start: 20020703, end: 20021213
  15. RISPERIDONE. [Suspect]
     Active Substance: RISPERIDONE
     Indication: BIPOLAR I DISORDER
     Route: 048
     Dates: start: 20131216
  16. RISPERIDONE. [Suspect]
     Active Substance: RISPERIDONE
     Indication: IMPULSE-CONTROL DISORDER
     Route: 048
     Dates: start: 20120618, end: 20120706
  17. RISPERIDONE. [Suspect]
     Active Substance: RISPERIDONE
     Indication: AUTISM SPECTRUM DISORDER
     Dosage: VARYING DOSES OF 1 MG AND 2 MG
     Route: 048
     Dates: start: 20140211, end: 20140218
  18. RISPERDAL CONSTA [Suspect]
     Active Substance: RISPERIDONE
     Indication: OBSESSIVE-COMPULSIVE DISORDER
     Route: 030
     Dates: start: 20131216, end: 20140218
  19. RISPERDAL CONSTA [Suspect]
     Active Substance: RISPERIDONE
     Indication: BIPOLAR I DISORDER
     Route: 030
     Dates: start: 20131216, end: 20140218
  20. RISPERDAL CONSTA [Suspect]
     Active Substance: RISPERIDONE
     Indication: AUTISM SPECTRUM DISORDER
     Route: 030
     Dates: start: 20131216, end: 20140218
  21. RISPERDAL [Suspect]
     Active Substance: RISPERIDONE
     Indication: BIPOLAR I DISORDER
     Route: 048
     Dates: start: 20020703, end: 20021213
  22. RISPERDAL [Suspect]
     Active Substance: RISPERIDONE
     Indication: AUTISM SPECTRUM DISORDER
     Route: 048
     Dates: start: 20120618
  23. RISPERDAL [Suspect]
     Active Substance: RISPERIDONE
     Indication: AUTISM SPECTRUM DISORDER
     Route: 048
     Dates: start: 20120706
  24. RISPERDAL [Suspect]
     Active Substance: RISPERIDONE
     Indication: MANIA
     Route: 048
     Dates: start: 20020703, end: 20021213
  25. RISPERDAL [Suspect]
     Active Substance: RISPERIDONE
     Indication: IMPULSE-CONTROL DISORDER
     Route: 048
     Dates: start: 20131216, end: 20140218
  26. RISPERIDONE. [Suspect]
     Active Substance: RISPERIDONE
     Indication: BIPOLAR I DISORDER
     Route: 048
     Dates: start: 20020703, end: 20021213
  27. RISPERIDONE. [Suspect]
     Active Substance: RISPERIDONE
     Indication: IMPULSE-CONTROL DISORDER
     Route: 048
     Dates: start: 20131216
  28. RISPERIDONE. [Suspect]
     Active Substance: RISPERIDONE
     Indication: IMPULSE-CONTROL DISORDER
     Dosage: VARYING DOSES OF 1 MG AND 2 MG
     Route: 048
     Dates: start: 20140211, end: 20140218
  29. RISPERDAL CONSTA [Suspect]
     Active Substance: RISPERIDONE
     Indication: IMPULSE-CONTROL DISORDER
     Route: 030
     Dates: start: 20131216, end: 20140218
  30. RISPERDAL [Suspect]
     Active Substance: RISPERIDONE
     Indication: BIPOLAR I DISORDER
     Route: 048
     Dates: start: 20120618
  31. RISPERDAL [Suspect]
     Active Substance: RISPERIDONE
     Indication: MANIA
     Route: 048
     Dates: start: 20131216, end: 20140218
  32. RISPERIDONE. [Suspect]
     Active Substance: RISPERIDONE
     Indication: MANIA
     Route: 048
     Dates: start: 20020703, end: 20021213
  33. RISPERIDONE. [Suspect]
     Active Substance: RISPERIDONE
     Indication: BIPOLAR I DISORDER
     Route: 048
     Dates: start: 20120618, end: 20120706
  34. RISPERDAL [Suspect]
     Active Substance: RISPERIDONE
     Indication: AUTISM SPECTRUM DISORDER
     Route: 048
     Dates: start: 20020703, end: 20021213
  35. RISPERDAL [Suspect]
     Active Substance: RISPERIDONE
     Indication: OBSESSIVE-COMPULSIVE DISORDER
     Route: 048
     Dates: start: 20120618
  36. RISPERIDONE. [Suspect]
     Active Substance: RISPERIDONE
     Indication: OBSESSIVE-COMPULSIVE DISORDER
     Route: 048
     Dates: start: 20131216
  37. RISPERIDONE. [Suspect]
     Active Substance: RISPERIDONE
     Indication: IMPULSE-CONTROL DISORDER
     Route: 048
     Dates: start: 20020703, end: 20021213
  38. RISPERIDONE. [Suspect]
     Active Substance: RISPERIDONE
     Indication: PRODUCT USED FOR UNKNOWN INDICATION
     Route: 065
  39. RISPERDAL [Suspect]
     Active Substance: RISPERIDONE
     Indication: BIPOLAR I DISORDER
     Route: 048
     Dates: start: 20131216, end: 20140218
  40. RISPERDAL [Suspect]
     Active Substance: RISPERIDONE
     Indication: OBSESSIVE-COMPULSIVE DISORDER
     Route: 048
     Dates: start: 20120706
  41. RISPERIDONE. [Suspect]
     Active Substance: RISPERIDONE
     Indication: MANIA
     Route: 048
     Dates: start: 20131216
  42. RISPERIDONE. [Suspect]
     Active Substance: RISPERIDONE
     Indication: MANIA
     Dosage: VARYING DOSES OF 1 MG AND 2 MG
     Route: 048
     Dates: start: 20140211, end: 20140218
  43. RISPERDAL [Suspect]
     Active Substance: RISPERIDONE
     Indication: OBSESSIVE-COMPULSIVE DISORDER
     Route: 048
     Dates: start: 20131216, end: 20140218
  44. RISPERDAL [Suspect]
     Active Substance: RISPERIDONE
     Indication: IMPULSE-CONTROL DISORDER
     Route: 048
     Dates: start: 20120706
  45. RISPERIDONE. [Suspect]
     Active Substance: RISPERIDONE
     Indication: OBSESSIVE-COMPULSIVE DISORDER
     Route: 048
     Dates: start: 20120618, end: 20120706
  46. RISPERIDONE. [Suspect]
     Active Substance: RISPERIDONE
     Indication: AUTISM SPECTRUM DISORDER
     Route: 048
     Dates: start: 20020703, end: 20021213
  47. RISPERIDONE. [Suspect]
     Active Substance: RISPERIDONE
     Indication: AUTISM SPECTRUM DISORDER
     Route: 048
     Dates: start: 20120618, end: 20120706

REACTIONS (2)
  - Gynaecomastia [Unknown]
  - Emotional disorder [Unknown]
